FAERS Safety Report 21211343 (Version 1)
Quarter: 2022Q3

REPORT INFORMATION
  Report Type: Spontaneous
  Country: GB (occurrence: GB)
  Receive Date: 20220815
  Receipt Date: 20220815
  Transmission Date: 20221027
  Serious: Yes (Other)
  Sender: FDA-Public Use
  Company Number: GB-MHRA-MED-202208021215173900-TPDNW

PATIENT
  Age: 64 Year
  Sex: Male

DRUGS (3)
  1. CIPROFLOXACIN [Suspect]
     Active Substance: CIPROFLOXACIN
     Indication: Prophylaxis
     Route: 065
     Dates: start: 20220725, end: 20220802
  2. ECULIZUMAB [Suspect]
     Active Substance: ECULIZUMAB
     Indication: Adverse drug reaction
     Route: 065
     Dates: start: 20220730
  3. NEFOPAM [Suspect]
     Active Substance: NEFOPAM
     Indication: Pain
     Route: 065
     Dates: end: 20220802

REACTIONS (3)
  - Generalised tonic-clonic seizure [Recovering/Resolving]
  - Atypical haemolytic uraemic syndrome [Unknown]
  - Acute kidney injury [Unknown]

NARRATIVE: CASE EVENT DATE: 20220801
